FAERS Safety Report 8207380-X (Version None)
Quarter: 2012Q1

REPORT INFORMATION
  Report Type: 
  Country: None (occurrence: None)
  Receive Date: 20120314
  Receipt Date: 20111107
  Transmission Date: 20120608
  Serious: Yes (Other)
  Sender: FDA-Public Use
  Company Number: ES-AMGEN-ESPCT2011059326

PATIENT
  Age: 64 Year
  Sex: Female
  Weight: 66.5 kg

DRUGS (6)
  1. ENBREL [Suspect]
     Indication: PSORIATIC ARTHROPATHY
     Dosage: 50 MG, QWK
     Route: 058
     Dates: start: 20080328
  2. EPANUTIN                           /00017402/ [Concomitant]
     Indication: INFARCTION
     Dosage: 100 MG, 3X/DAY
     Route: 048
  3. CIMASCAL [Concomitant]
     Dosage: 2 DF, 1X/DAY
     Route: 048
  4. CALCIUM [Concomitant]
     Dosage: 150 MG, MONTHLY
     Route: 048
  5. ASPIRIN [Concomitant]
     Indication: INFARCTION
     Dosage: 300 MG, 1X/DAY
     Route: 048
  6. SIMVASTATIN [Concomitant]
     Indication: BLOOD CHOLESTEROL
     Dosage: 20 MG, 1X/DAY
     Route: 048

REACTIONS (2)
  - FEMUR FRACTURE [None]
  - CEREBROVASCULAR ACCIDENT [None]
